FAERS Safety Report 9110084 (Version 1)
Quarter: 2013Q1

REPORT INFORMATION
  Report Type: Spontaneous
  Country: BR (occurrence: BR)
  Receive Date: 20130222
  Receipt Date: 20130222
  Transmission Date: 20140127
  Serious: Yes (Death, Other)
  Sender: FDA-Public Use
  Company Number: BR-AMGEN-BRACT2013011990

PATIENT
  Age: 40 Year
  Sex: Female
  Weight: 87 kg

DRUGS (2)
  1. ENBREL [Suspect]
     Indication: RHEUMATOID ARTHRITIS
     Dosage: 50 MG, QWK
     Route: 058
  2. ENALAPRIL [Concomitant]
     Dosage: 5 MG, 1X/DAY

REACTIONS (2)
  - Death [Fatal]
  - Pneumonia [Unknown]
